FAERS Safety Report 4489178-1 (Version None)
Quarter: 2004Q4

REPORT INFORMATION
  Report Type: 
  Country: None (occurrence: None)
  Receive Date: 20041029
  Receipt Date: 20041019
  Transmission Date: 20050328
  Serious: Yes (Hospitalization)
  Sender: FDA-Public Use
  Company Number: JP-JNJFOC-20041005658

PATIENT
  Age: 39 Year
  Sex: Male

DRUGS (1)
  1. LEVOFLOXACIN [Suspect]
     Route: 049
     Dates: start: 20040817, end: 20040913

REACTIONS (3)
  - BACTERIAL INFECTION [None]
  - CHILLS [None]
  - PROSTATITIS [None]
